FAERS Safety Report 7843717-9 (Version None)
Quarter: 2011Q4

REPORT INFORMATION
  Report Type: 
  Country: None (occurrence: None)
  Receive Date: 20111025
  Receipt Date: 20111020
  Transmission Date: 20120403
  Serious: Yes (Other)
  Sender: FDA-Public Use
  Company Number: BR-ROCHE-1005965

PATIENT
  Sex: Male
  Weight: 90.5 kg

DRUGS (1)
  1. DIAZEPAM [Suspect]
     Indication: DEPRESSION
     Route: 065

REACTIONS (2)
  - DRUG INEFFECTIVE [None]
  - HYPERTENSION [None]
